FAERS Safety Report 23377311 (Version 1)
Quarter: 2024Q1

REPORT INFORMATION
  Report Type: Spontaneous
  Country: US (occurrence: None)
  Receive Date: 20240108
  Receipt Date: 20240108
  Transmission Date: 20240410
  Serious: Yes (Other)
  Sender: FDA-Public Use
  Company Number: US-ROCHE-3484796

PATIENT
  Sex: Female

DRUGS (14)
  1. LUCENTIS [Suspect]
     Active Substance: RANIBIZUMAB
     Indication: Diabetic retinal oedema
     Dosage: ON 21/DEC/2023, SHE RECEIVED LAST DOSE OF RANIBIZUMAB.
     Route: 050
     Dates: start: 20180606
  2. AVASTIN [Suspect]
     Active Substance: BEVACIZUMAB
     Indication: Diabetic retinal oedema
     Route: 065
     Dates: start: 20171011, end: 20180418
  3. LISINOPRIL [Concomitant]
     Active Substance: LISINOPRIL
  4. CRESTOR [Concomitant]
     Active Substance: ROSUVASTATIN CALCIUM
  5. GLIMEPIRIDE [Concomitant]
     Active Substance: GLIMEPIRIDE
  6. ASPIRIN [Concomitant]
     Active Substance: ASPIRIN
  7. TORSEMIDE [Concomitant]
     Active Substance: TORSEMIDE
  8. TRADJENTA [Concomitant]
     Active Substance: LINAGLIPTIN
  9. CLOPIDOGREL [Concomitant]
     Active Substance: CLOPIDOGREL BISULFATE
  10. METOPROLOL [Concomitant]
     Active Substance: METOPROLOL
  11. FLUOXETINE [Concomitant]
     Active Substance: FLUOXETINE HYDROCHLORIDE
  12. ERGOCALCIFEROL [Concomitant]
     Active Substance: ERGOCALCIFEROL
  13. CALCIUM [Concomitant]
     Active Substance: CALCIUM
  14. BETADINE DROPS [Concomitant]

REACTIONS (2)
  - Endophthalmitis [Recovering/Resolving]
  - Off label use [Unknown]

NARRATIVE: CASE EVENT DATE: 20180606
